FAERS Safety Report 9536472 (Version 2)
Quarter: 2013Q4

REPORT INFORMATION
  Report Type: Spontaneous
  Country: JP (occurrence: JP)
  Receive Date: 20130919
  Receipt Date: 20131025
  Transmission Date: 20140711
  Serious: Yes (Other)
  Sender: FDA-Public Use
  Company Number: JP-JNJFOC-20130908866

PATIENT
  Age: 77 Year
  Sex: Female
  Weight: 86 kg

DRUGS (10)
  1. XARELTO [Suspect]
     Indication: THROMBOSIS PROPHYLAXIS
     Route: 048
     Dates: start: 20130515, end: 20130603
  2. BAYASPIRIN [Interacting]
     Indication: PRODUCT USED FOR UNKNOWN INDICATION
     Route: 048
     Dates: start: 20040108
  3. REZALTAS [Concomitant]
     Route: 048
     Dates: start: 20110706
  4. NEXIUM [Concomitant]
     Route: 048
     Dates: start: 20121107
  5. MEVALOTIN [Concomitant]
     Route: 048
     Dates: start: 20070413
  6. MUCOSTA [Concomitant]
     Route: 048
     Dates: start: 20071012
  7. CELECOXIB [Concomitant]
     Route: 048
     Dates: start: 20100321
  8. GLYCORAN [Concomitant]
     Route: 048
     Dates: start: 20041104
  9. GLACTIV [Concomitant]
     Route: 048
     Dates: start: 20111005
  10. VASOLAN [Concomitant]
     Route: 048
     Dates: start: 20110706

REACTIONS (2)
  - Lower gastrointestinal haemorrhage [Recovered/Resolved]
  - Drug interaction [Unknown]
